FAERS Safety Report 9962776 (Version 1)
Quarter: 2014Q1

REPORT INFORMATION
  Report Type: Report from Study
  Country: US (occurrence: US)
  Receive Date: 20140305
  Receipt Date: 20140305
  Transmission Date: 20141002
  Serious: No
  Sender: FDA-Public Use
  Company Number: US-ABBVIE-13P-163-1112257-00

PATIENT
  Age: 60 Year
  Sex: Male

DRUGS (5)
  1. HUMIRA [Suspect]
     Indication: COLITIS ULCERATIVE
     Dates: start: 20130430
  2. AMITRIPTYLINE [Concomitant]
     Indication: INSOMNIA
     Dosage: 40MG AT BEDIME
  3. LIALDA [Concomitant]
     Indication: PRODUCT USED FOR UNKNOWN INDICATION
  4. TESTIM [Concomitant]
     Indication: BLOOD TESTOSTERONE DECREASED
     Dosage: 1% DAILY
     Route: 061
  5. CIALIS [Concomitant]
     Indication: PRODUCT USED FOR UNKNOWN INDICATION
     Dosage: 5MG DAILY

REACTIONS (3)
  - Alopecia [Not Recovered/Not Resolved]
  - Oral candidiasis [Not Recovered/Not Resolved]
  - Injection site pain [Recovered/Resolved]
